FAERS Safety Report 4982438-7 (Version None)
Quarter: 2006Q2

REPORT INFORMATION
  Report Type: 
  Country: None (occurrence: None)
  Receive Date: 20060419
  Receipt Date: 20060410
  Transmission Date: 20061013
  Serious: Yes (Hospitalization)
  Sender: FDA-Public Use
  Company Number: S06-USA-01447-01

PATIENT
  Age: 43 Year
  Sex: Female

DRUGS (6)
  1. LEXAPRO [Suspect]
     Indication: MAJOR DEPRESSION
     Dates: start: 20060101
  2. ANTI-SEIZURE MEDICATIONS [Concomitant]
  3. DOXEPIN [Concomitant]
  4. RESTLESS LEG SYNDROME MEDICATION [Concomitant]
  5. WATER PILL [Concomitant]
  6. POTASSIUM [Concomitant]

REACTIONS (8)
  - CARDIAC STRESS TEST ABNORMAL [None]
  - CONDITION AGGRAVATED [None]
  - DRUG INEFFECTIVE [None]
  - FATIGUE [None]
  - GASTROOESOPHAGEAL REFLUX DISEASE [None]
  - HEADACHE [None]
  - MOOD SWINGS [None]
  - OESOPHAGEAL SPASM [None]
